FAERS Safety Report 8114478-3 (Version None)
Quarter: 2012Q1

REPORT INFORMATION
  Report Type: 
  Country: None (occurrence: None)
  Receive Date: 20120206
  Receipt Date: 20120127
  Transmission Date: 20120608
  Serious: No
  Sender: FDA-Public Use
  Company Number: US-BIOGENIDEC-2012BI003505

PATIENT
  Sex: Female

DRUGS (2)
  1. AVONEX [Suspect]
     Indication: MULTIPLE SCLEROSIS
     Route: 030
     Dates: start: 20110204
  2. TRAMADOL HCL [Concomitant]
     Indication: ARTHRALGIA

REACTIONS (8)
  - MUSCULOSKELETAL PAIN [None]
  - HEADACHE [None]
  - PAIN [None]
  - RASH [None]
  - INSOMNIA [None]
  - NAUSEA [None]
  - PRURITUS GENERALISED [None]
  - SKIN WARM [None]
